FAERS Safety Report 12309217 (Version 1)
Quarter: 2016Q2

REPORT INFORMATION
  Report Type: Spontaneous
  Country: None (occurrence: None)
  Receive Date: 20160426
  Receipt Date: 20160426
  Transmission Date: 20160815
  Serious: Yes (Other)
  Sender: FDA-Public Use
  Company Number: None

PATIENT
  Age: 24 Year
  Sex: Male
  Weight: 95.26 kg

DRUGS (2)
  1. LAMOTRAGINE [Concomitant]
     Active Substance: LAMOTRIGINE
  2. LEXAPRO [Suspect]
     Active Substance: ESCITALOPRAM OXALATE

REACTIONS (2)
  - Food interaction [None]
  - Headache [None]

NARRATIVE: CASE EVENT DATE: 20160401
